FAERS Safety Report 21600450 (Version 3)
Quarter: 2022Q4

REPORT INFORMATION
  Report Type: Report from Study
  Country: US (occurrence: US)
  Receive Date: 20221116
  Receipt Date: 20221219
  Transmission Date: 20230112
  Serious: No
  Sender: FDA-Public Use
  Company Number: US-002147023-NVSC2022US257776

PATIENT
  Age: 8 Year
  Sex: Female

DRUGS (2)
  1. COSENTYX [Suspect]
     Active Substance: SECUKINUMAB
     Indication: Psoriasis
     Dosage: 75 MG, QW (ONCE A WEEK FOR 5 WEEKS)
     Route: 058
     Dates: start: 20221020
  2. COSENTYX [Suspect]
     Active Substance: SECUKINUMAB
     Dosage: 75 MG, QMO (THEN ONCE EVERY 4 WEEKS)
     Route: 058

REACTIONS (5)
  - Injection site pain [Recovered/Resolved]
  - Pruritus [Unknown]
  - Influenza [Recovered/Resolved]
  - Pain in extremity [Unknown]
  - Product storage error [Unknown]

NARRATIVE: CASE EVENT DATE: 20221114
